FAERS Safety Report 21099036 (Version 13)
Quarter: 2024Q3

REPORT INFORMATION
  Report Type: Report from Study
  Country: CO (occurrence: CO)
  Receive Date: 20220719
  Receipt Date: 20240722
  Transmission Date: 20241016
  Serious: Yes (Other)
  Sender: ROCHE
  Company Number: CO-002147023-NVSC2022CO142736

PATIENT
  Age: 47 Year
  Sex: Female
  Weight: 60 kg

DRUGS (21)
  1. XOLAIR [Suspect]
     Active Substance: OMALIZUMAB
     Indication: Chronic spontaneous urticaria
     Route: 058
     Dates: start: 20201016
  2. XOLAIR [Suspect]
     Active Substance: OMALIZUMAB
     Route: 058
     Dates: start: 2020
  3. XOLAIR [Suspect]
     Active Substance: OMALIZUMAB
     Route: 058
     Dates: start: 20230918
  4. XOLAIR [Suspect]
     Active Substance: OMALIZUMAB
     Route: 058
     Dates: start: 20240522
  5. CARVEDILOL [Suspect]
     Active Substance: CARVEDILOL
     Indication: Product used for unknown indication
     Dosage: 6.5 MG, Q12H, (SINCE 3 YEARS AGO) (MORNING AND AT NIGHT)
     Route: 065
  6. CARVEDILOL [Suspect]
     Active Substance: CARVEDILOL
     Indication: Product used for unknown indication
     Dosage: 1.5 MG, QD (4 YEARS AGO)
     Route: 065
  7. NIFEDIPINE [Concomitant]
     Active Substance: NIFEDIPINE
     Indication: Hypertension
     Dosage: 30 MG, Q12H (20 YEARS AGO)
     Route: 050
  8. NIFEDIPINE [Concomitant]
     Active Substance: NIFEDIPINE
     Dosage: 30 MG, Q12H (SINCE A YEAR AGO)
     Route: 065
  9. NIFEDIPINE [Concomitant]
     Active Substance: NIFEDIPINE
     Dosage: 30 MG, Q12H (20 YEARS AGO)
  10. NIFEDIPINE [Concomitant]
     Active Substance: NIFEDIPINE
     Dosage: 30 MG, Q12H (SINCE A YEAR AGO)
  11. PRAZOSIN [Concomitant]
     Active Substance: PRAZOSIN
     Indication: Hypertension
     Dosage: 1 MG, Q12H (1 YEAR AGO)
     Route: 050
  12. PRAZOSIN [Concomitant]
     Active Substance: PRAZOSIN
     Dosage: UNK, Q12H, (2 OF 20MG)
     Route: 065
  13. PRAZOSIN [Concomitant]
     Active Substance: PRAZOSIN
     Dosage: 1 MG, Q12H (1 YEAR AGO)
     Route: 065
  14. PRAZOSIN [Concomitant]
     Active Substance: PRAZOSIN
     Dosage: UNK, Q12H, (2 OF 20MG)
     Route: 065
  15. ENALAPRIL [Concomitant]
     Active Substance: ENALAPRIL
     Indication: Hypertension
     Dosage: 20 MG, Q12H (1 YEAR AGO)
     Route: 050
  16. ENALAPRIL [Concomitant]
     Active Substance: ENALAPRIL
     Dosage: 20 MG, Q12H (1 YEAR AGO)
  17. ROSUVASTATIN [Concomitant]
     Active Substance: ROSUVASTATIN
     Indication: Product used for unknown indication
     Dosage: 40 MG, QD (1 YEAR AGO)
     Route: 050
  18. ROSUVASTATIN [Concomitant]
     Active Substance: ROSUVASTATIN
     Dosage: 40 MG, QD (1 YEAR AGO)
  19. INDAPAMIDE [Concomitant]
     Active Substance: INDAPAMIDE
     Indication: Product used for unknown indication
     Dosage: 1.5 MG, QD (SINCE 2 DAYS GO)
     Route: 065
  20. INDAPAMIDE [Concomitant]
     Active Substance: INDAPAMIDE
     Dosage: 1.5 MG, QD (SINCE 2 DAYS GO)
  21. CARVEDILOL [Concomitant]
     Active Substance: CARVEDILOL
     Indication: Product used for unknown indication
     Dosage: 1.5 MG, QD (4 YEARS AGO)

REACTIONS (13)
  - Aneurysm [Unknown]
  - Dizziness [Not Recovered/Not Resolved]
  - Hypersensitivity [Not Recovered/Not Resolved]
  - Discouragement [Not Recovered/Not Resolved]
  - Influenza [Not Recovered/Not Resolved]
  - Anaemia [Not Recovered/Not Resolved]
  - Urticaria [Recovered/Resolved]
  - Illness [Unknown]
  - Viral infection [Recovered/Resolved]
  - Syncope [Not Recovered/Not Resolved]
  - Sleep disorder [Unknown]
  - Blood triglycerides increased [Not Recovered/Not Resolved]
  - Pruritus [Recovered/Resolved]
